FAERS Safety Report 23533654 (Version 3)
Quarter: 2025Q1

REPORT INFORMATION
  Report Type: Report from Study
  Country: US (occurrence: US)
  Receive Date: 20240216
  Receipt Date: 20250311
  Transmission Date: 20250409
  Serious: Yes (Hospitalization, Other)
  Sender: ABBVIE
  Company Number: US-ABBVIE-5639185

PATIENT
  Age: 79 Year
  Sex: Male
  Weight: 73.935 kg

DRUGS (3)
  1. HUMIRA [Suspect]
     Active Substance: ADALIMUMAB
     Indication: Psoriasis
     Dosage: FORM STRENGTH: 40 MILLIGRAM?START DATE TEXT: 6YRS OR MORE CITRATE FREE
     Route: 058
  2. AMLODIPINE [Concomitant]
     Active Substance: AMLODIPINE BESYLATE
     Indication: Hypertension
  3. MAXITROL [Concomitant]
     Active Substance: DEXAMETHASONE\NEOMYCIN SULFATE\POLYMYXIN B SULFATE
     Indication: Eye disorder

REACTIONS (6)
  - Skin hypertrophy [Recovering/Resolving]
  - Peripheral swelling [Recovering/Resolving]
  - Hypoacusis [Unknown]
  - Rash [Not Recovered/Not Resolved]
  - Macular degeneration [Recovering/Resolving]
  - Stress [Unknown]

NARRATIVE: CASE EVENT DATE: 20180101
